FAERS Safety Report 6146207-7 (Version None)
Quarter: 2009Q2

REPORT INFORMATION
  Report Type: 
  Country: None (occurrence: None)
  Receive Date: 20090407
  Receipt Date: 20090326
  Transmission Date: 20091009
  Serious: Yes (Other)
  Sender: FDA-Public Use
  Company Number: PHHY2009US11381

PATIENT
  Age: 32 Year
  Sex: Female

DRUGS (5)
  1. HYDROCHLOROTHIAZIDE [Suspect]
     Dosage: 25 MG, QD
  2. BENAZEPRIL HYDROCHLORIDE [Suspect]
     Dosage: 10 MG, QD
  3. BENAZEPRIL HYDROCHLORIDE [Suspect]
     Dosage: 40 MG, QD
  4. METOPROLOL [Suspect]
     Indication: HYPERTENSION
     Dosage: 100 MG, BID
  5. LABETALOL HCL [Concomitant]
     Indication: HYPERTENSION

REACTIONS (13)
  - ANOREXIA [None]
  - BIOPSY BILE DUCT ABNORMAL [None]
  - CHOLESTASIS [None]
  - FATIGUE [None]
  - GLOMERULOSCLEROSIS [None]
  - HAEMODIALYSIS [None]
  - HEPATIC FUNCTION ABNORMAL [None]
  - HEPATOMEGALY [None]
  - JAUNDICE [None]
  - OCULAR ICTERUS [None]
  - PRURITUS [None]
  - RENAL FAILURE ACUTE [None]
  - TUBULOINTERSTITIAL NEPHRITIS [None]
